FAERS Safety Report 13368066 (Version 1)
Quarter: 2017Q1

REPORT INFORMATION
  Report Type: Spontaneous
  Country: US (occurrence: US)
  Receive Date: 20170323
  Receipt Date: 20170323
  Transmission Date: 20170429
  Serious: Yes (Hospitalization)
  Sender: FDA-Public Use
  Company Number: None

PATIENT
  Age: 78 Year
  Sex: Female

DRUGS (17)
  1. TRAMADOL. [Concomitant]
     Active Substance: TRAMADOL
  2. DOCUSATE [Concomitant]
     Active Substance: DOCUSATE
  3. MUCINEX [Concomitant]
     Active Substance: GUAIFENESIN
  4. VITAMIN B12 [Concomitant]
     Active Substance: CYANOCOBALAMIN
  5. AMLODIPINE [Concomitant]
     Active Substance: AMLODIPINE BESYLATE
  6. FIBER CHOICE [Concomitant]
  7. FLONASE [Concomitant]
     Active Substance: FLUTICASONE PROPIONATE
  8. ANASTROZOLE. [Concomitant]
     Active Substance: ANASTROZOLE
  9. ASA [Concomitant]
     Active Substance: ASPIRIN
  10. HUMULIN NOS [Concomitant]
     Active Substance: INSULIN HUMAN
  11. TOBRAMYCIN 300 MG [Suspect]
     Active Substance: TOBRAMYCIN
     Indication: PRODUCT USED FOR UNKNOWN INDICATION
     Route: 055
     Dates: start: 20170202
  12. GLUCOS/CHOND [Concomitant]
  13. ALBUTEROL. [Concomitant]
     Active Substance: ALBUTEROL
  14. LOSARTAN. [Concomitant]
     Active Substance: LOSARTAN
  15. NACL [Concomitant]
     Active Substance: SODIUM CHLORIDE
  16. AMOX/K CLAV [Concomitant]
     Active Substance: AMOXICILLIN\CLAVULANATE POTASSIUM
  17. METOPROLOL. [Concomitant]
     Active Substance: METOPROLOL

REACTIONS (1)
  - Respiratory disorder [None]

NARRATIVE: CASE EVENT DATE: 20170210
